FAERS Safety Report 9119558 (Version 1)
Quarter: 2013Q1

REPORT INFORMATION
  Report Type: Spontaneous
  Country: US (occurrence: US)
  Receive Date: 20130226
  Receipt Date: 20130226
  Transmission Date: 20140127
  Serious: Yes (Other)
  Sender: FDA-Public Use
  Company Number: US-MYLANLABS-2013S1003152

PATIENT
  Age: 61 Year
  Sex: Male

DRUGS (3)
  1. ITRACONAZOLE [Suspect]
     Route: 065
  2. METOPROLOL [Concomitant]
     Indication: HYPERTENSION
     Route: 065
  3. LORATADINE [Concomitant]
     Indication: HYPERSENSITIVITY
     Route: 065

REACTIONS (1)
  - Hypercalcaemia [Recovered/Resolved]
